FAERS Safety Report 18873318 (Version 1)
Quarter: 2021Q1

REPORT INFORMATION
  Report Type: Spontaneous
  Country: US (occurrence: US)
  Receive Date: 20210210
  Receipt Date: 20210210
  Transmission Date: 20210420
  Serious: No
  Sender: FDA-Public Use
  Company Number: US-CELGENEUS-USA-20210200813

PATIENT
  Sex: Male
  Weight: 65 kg

DRUGS (7)
  1. REBLOZYL [Suspect]
     Active Substance: LUSPATERCEPT-AAMT
     Dosage: 1.25 MILLIGRAM/KILOGRAM
     Route: 065
  2. TESTOSTERONE CYPIONATE. [Concomitant]
     Active Substance: TESTOSTERONE CYPIONATE
     Indication: PRODUCT USED FOR UNKNOWN INDICATION
     Dosage: 200 MG/ML?0.5 WEEKLY
     Route: 065
  3. MELOXICAM. [Concomitant]
     Active Substance: MELOXICAM
     Indication: PRODUCT USED FOR UNKNOWN INDICATION
     Dosage: 7.5 MILLIGRAM
     Route: 065
  4. PENICILLIN [Concomitant]
     Active Substance: PENICILLIN
     Indication: PRODUCT USED FOR UNKNOWN INDICATION
     Route: 065
  5. REBLOZYL [Suspect]
     Active Substance: LUSPATERCEPT-AAMT
     Indication: THALASSAEMIA BETA
     Dosage: 1 MILLIGRAM/KILOGRAM
     Route: 065
     Dates: start: 2020
  6. FOLATE [Concomitant]
     Active Substance: FOLATE SODIUM
     Indication: PRODUCT USED FOR UNKNOWN INDICATION
     Route: 065
  7. REBLOZYL [Suspect]
     Active Substance: LUSPATERCEPT-AAMT
     Dosage: 1 MILLIGRAM/KILOGRAM
     Route: 065

REACTIONS (2)
  - Back pain [Unknown]
  - Headache [Unknown]
